FAERS Safety Report 17565540 (Version 1)
Quarter: 2020Q1

REPORT INFORMATION
  Report Type: Spontaneous
  Country: US (occurrence: US)
  Receive Date: 20200320
  Receipt Date: 20200320
  Transmission Date: 20200409
  Serious: Yes (Death)
  Sender: FDA-Public Use
  Company Number: None

PATIENT
  Age: 71 Year
  Sex: Female

DRUGS (7)
  1. LORAZEPAM. [Concomitant]
     Active Substance: LORAZEPAM
  2. HALOPERIDOL. [Concomitant]
     Active Substance: HALOPERIDOL
  3. PROCHLORPER [Concomitant]
  4. ACETAMIN [Concomitant]
     Active Substance: ACETAMINOPHEN
  5. HYOSCYAMINE. [Concomitant]
     Active Substance: HYOSCYAMINE
  6. IBRANCE [Suspect]
     Active Substance: PALBOCICLIB
     Indication: BREAST CANCER
     Route: 048
     Dates: start: 20200103
  7. MORPHINE SUL [Concomitant]
     Active Substance: MORPHINE SULFATE

REACTIONS (1)
  - Death [None]
